FAERS Safety Report 18631477 (Version 2)
Quarter: 2021Q1

REPORT INFORMATION
  Report Type: Spontaneous
  Country: US (occurrence: US)
  Receive Date: 20201218
  Receipt Date: 20210122
  Transmission Date: 20210419
  Serious: Yes (Hospitalization)
  Sender: FDA-Public Use
  Company Number: US-TEVA-2020-US-1858053

PATIENT
  Age: 33 Year
  Sex: Male

DRUGS (2)
  1. WARFARIN [Suspect]
     Active Substance: WARFARIN
     Indication: ANTICOAGULANT THERAPY
     Dosage: INITIAL DOSE UNKNOWN
     Route: 048
  2. WARFARIN [Interacting]
     Active Substance: WARFARIN
     Dosage: 15 MILLIGRAM DAILY;
     Route: 048

REACTIONS (3)
  - Food interaction [Unknown]
  - Anticoagulation drug level below therapeutic [Unknown]
  - Drug resistance [Recovered/Resolved]

NARRATIVE: CASE EVENT DATE: 201910
